FAERS Safety Report 25292732 (Version 1)
Quarter: 2025Q2

REPORT INFORMATION
  Report Type: Spontaneous
  Country: US (occurrence: US)
  Receive Date: 20250510
  Receipt Date: 20250510
  Transmission Date: 20250716
  Serious: No
  Sender: SANOFI AVENTIS
  Company Number: US-SA-2025SA122488

PATIENT
  Sex: Male

DRUGS (1)
  1. DUPIXENT [Suspect]
     Active Substance: DUPILUMAB
     Indication: Nasal polyps
     Dosage: 300 MG, QOW
     Route: 058
     Dates: start: 20250412

REACTIONS (7)
  - Rebound nasal congestion [Recovering/Resolving]
  - Anosmia [Recovering/Resolving]
  - Rebound effect [Recovering/Resolving]
  - Rhinorrhoea [Recovering/Resolving]
  - Rebound effect [Recovering/Resolving]
  - Nasal polyps [Recovering/Resolving]
  - Rebound effect [Recovering/Resolving]

NARRATIVE: CASE EVENT DATE: 20250401
